FAERS Safety Report 6992609-6 (Version None)
Quarter: 2010Q3

REPORT INFORMATION
  Report Type: 
  Country: None (occurrence: None)
  Receive Date: 20100917
  Receipt Date: 20100909
  Transmission Date: 20110219
  Serious: Yes (Other)
  Sender: FDA-Public Use
  Company Number: BR-ROCHE-726687

PATIENT
  Sex: Female
  Weight: 69 kg

DRUGS (6)
  1. XELODA [Suspect]
     Indication: METASTASES TO LUNG
     Route: 048
     Dates: start: 20070101
  2. XELODA [Suspect]
     Dosage: 7 TAB DAILY
     Route: 048
  3. XELODA [Suspect]
     Dosage: DOSE DECREASED 6 TABLETS DAILY
     Route: 048
  4. XELODA [Suspect]
     Dosage: 5 TABLETS DAILY  BATCH NUMBER: U9388B01
     Route: 048
  5. HYDROCHLOROTHIAZIDE [Concomitant]
     Dosage: 25 MG AT MORNING
     Route: 048
     Dates: start: 19960101
  6. CAPTOPRIL [Concomitant]
     Indication: HYPERTENSION
     Dosage: AT MORNING
     Route: 048
     Dates: start: 19960101

REACTIONS (7)
  - GAIT DISTURBANCE [None]
  - METASTASES TO LUNG [None]
  - OEDEMA PERIPHERAL [None]
  - PAIN IN EXTREMITY [None]
  - PALMAR-PLANTAR ERYTHRODYSAESTHESIA SYNDROME [None]
  - SKIN CHAPPED [None]
  - SKIN HAEMORRHAGE [None]
